FAERS Safety Report 25505074 (Version 1)
Quarter: 2025Q3

REPORT INFORMATION
  Report Type: Spontaneous
  Country: CN (occurrence: CN)
  Receive Date: 20250702
  Receipt Date: 20250702
  Transmission Date: 20251020
  Serious: Yes (Other)
  Sender: PURDUE
  Company Number: CN-NAPPMUNDI-GBR-2025-0126771

PATIENT
  Age: 69 Year
  Sex: Male

DRUGS (3)
  1. MS CONTIN [Suspect]
     Active Substance: MORPHINE SULFATE
     Indication: Analgesic therapy
     Route: 048
  2. MS CONTIN [Suspect]
     Active Substance: MORPHINE SULFATE
     Route: 048
     Dates: start: 20250409, end: 20250409
  3. MS CONTIN [Suspect]
     Active Substance: MORPHINE SULFATE
     Route: 048
     Dates: start: 20250410

REACTIONS (3)
  - Depressed level of consciousness [Recovering/Resolving]
  - Toxic shock syndrome [Recovering/Resolving]
  - Toxicity to various agents [Recovering/Resolving]

NARRATIVE: CASE EVENT DATE: 20250409
